FAERS Safety Report 10151029 (Version 1)
Quarter: 2014Q2

REPORT INFORMATION
  Report Type: Spontaneous
  Country: US (occurrence: US)
  Receive Date: 20140502
  Receipt Date: 20140502
  Transmission Date: 20141212
  Serious: Yes (Other)
  Sender: FDA-Public Use
  Company Number: US-AMGEN-USASP2014030691

PATIENT
  Age: 62 Year
  Sex: Female

DRUGS (5)
  1. PROLIA [Suspect]
     Indication: OSTEOPOROSIS POSTMENOPAUSAL
     Dosage: UNK
     Route: 065
  2. SYMBICORT [Concomitant]
     Dosage: UNK UNK, QD
  3. PROAIR                             /00139502/ [Concomitant]
     Dosage: UNK UNK, AS NECESSARY
  4. ONE A DAY                          /02262701/ [Concomitant]
  5. CALCIUM WITH VITAMIN D             /00944201/ [Concomitant]

REACTIONS (10)
  - Upper limb fracture [Unknown]
  - Fall [Unknown]
  - Feeling abnormal [Unknown]
  - Injection site swelling [Recovered/Resolved]
  - Paraesthesia [Unknown]
  - Limb discomfort [Not Recovered/Not Resolved]
  - Incorrect route of drug administration [Unknown]
  - Bone disorder [Unknown]
  - Vitamin D decreased [Unknown]
  - Incorrect route of drug administration [Unknown]
